FAERS Safety Report 14271136 (Version 1)
Quarter: 2017Q4

REPORT INFORMATION
  Report Type: Spontaneous
  Country: US (occurrence: US)
  Receive Date: 20171211
  Receipt Date: 20171211
  Transmission Date: 20180321
  Serious: Yes (Other)
  Sender: FDA-Public Use
  Company Number: US-PFIZER INC-2017527362

PATIENT
  Age: 71 Year
  Sex: Male

DRUGS (2)
  1. DAPTOMYCIN. [Suspect]
     Active Substance: DAPTOMYCIN
     Indication: PNEUMONIA
     Dosage: UNK (DAPTOMYCIN TO COMPLETE 6 WEEKS OF TREATMENT)
     Route: 042
  2. OXYGEN. [Concomitant]
     Active Substance: OXYGEN
     Dosage: 2 L, UNK (2L OF NASAL CANNULA OXYGEN)
     Route: 045

REACTIONS (2)
  - Eosinophilic pneumonia [Recovered/Resolved]
  - Hypoxia [Recovered/Resolved]
